FAERS Safety Report 25086608 (Version 1)
Quarter: 2025Q1

REPORT INFORMATION
  Report Type: Report from Study
  Country: US (occurrence: US)
  Receive Date: 20250317
  Receipt Date: 20250317
  Transmission Date: 20250408
  Serious: Yes (Other)
  Sender: ABBVIE
  Company Number: US-ABBVIE-6177167

PATIENT
  Sex: Female

DRUGS (1)
  1. CREON [Suspect]
     Active Substance: PANCRELIPASE AMYLASE\PANCRELIPASE LIPASE\PANCRELIPASE PROTEASE
     Indication: Product used for unknown indication
     Route: 048

REACTIONS (8)
  - Completed suicide [Unknown]
  - Underweight [Unknown]
  - Inability to crawl [Unknown]
  - Pain [Unknown]
  - Muscle spasms [Unknown]
  - Vision blurred [Unknown]
  - Insomnia [Unknown]
  - Autism spectrum disorder [Unknown]
